FAERS Safety Report 4847159-X (Version None)
Quarter: 2005Q4

REPORT INFORMATION
  Report Type: 
  Country: None (occurrence: None)
  Receive Date: 20051206
  Receipt Date: 20051206
  Transmission Date: 20060501
  Serious: Yes (Other)
  Sender: FDA-Public Use
  Company Number: None

PATIENT
  Age: 75 Year
  Sex: Female

DRUGS (3)
  1. SINEMET [Suspect]
     Indication: PARKINSON'S DISEASE
     Dosage: TAKE 1 TABLET THREE TIMES A DAY AS DIRECTED
     Dates: start: 20051127, end: 20051204
  2. SELEGELINE [Concomitant]
  3. MIRAPEX [Concomitant]

REACTIONS (1)
  - UNEVALUABLE EVENT [None]
